FAERS Safety Report 6386244-0 (Version None)
Quarter: 2009Q3

REPORT INFORMATION
  Report Type: 
  Country: None (occurrence: None)
  Receive Date: 20090929
  Receipt Date: 20090629
  Transmission Date: 20100115
  Serious: No
  Sender: FDA-Public Use
  Company Number: 283940

PATIENT
  Age: 76 Year
  Sex: Female

DRUGS (8)
  1. LUCENTIS [Suspect]
     Indication: MACULAR DEGENERATION
     Dosage: INTRAVITREAL
     Dates: start: 20090409
  2. GLUCOPHAGE [Concomitant]
  3. GLUCOTROL XL [Concomitant]
  4. ACTOS [Concomitant]
  5. LOPRESSOR [Concomitant]
  6. ALTACE [Concomitant]
  7. NORVASC [Concomitant]
  8. ZOCOR [Concomitant]

REACTIONS (1)
  - DIZZINESS [None]
